FAERS Safety Report 11004549 (Version 2)
Quarter: 2015Q2

REPORT INFORMATION
  Report Type: Report from Study
  Country: US (occurrence: US)
  Receive Date: 20150409
  Receipt Date: 20150429
  Transmission Date: 20150821
  Serious: Yes (Hospitalization)
  Sender: FDA-Public Use
  Company Number: US-EISAI MEDICAL RESEARCH-EC-2015-005170

PATIENT
  Age: 76 Year
  Sex: Male
  Weight: 70 kg

DRUGS (8)
  1. LENVIMA [Suspect]
     Active Substance: LENVATINIB
     Indication: THYROID CANCER
     Route: 048
     Dates: start: 20150312
  2. FENTANYL TRANSDERMAL SYSTEM [Concomitant]
     Active Substance: FENTANYL
     Route: 061
  3. SYNTHROID [Concomitant]
     Active Substance: LEVOTHYROXINE SODIUM
  4. MORPHINE SULFATE. [Concomitant]
     Active Substance: MORPHINE SULFATE
  5. REMERON [Concomitant]
     Active Substance: MIRTAZAPINE
  6. IRON [Concomitant]
     Active Substance: IRON
  7. LEXAPRO [Concomitant]
     Active Substance: ESCITALOPRAM OXALATE
  8. PYRIDOXINE [Concomitant]
     Active Substance: PYRIDOXINE

REACTIONS (4)
  - Pneumonia [Unknown]
  - Oral discomfort [Unknown]
  - Blood pressure increased [Unknown]
  - Constipation [Unknown]

NARRATIVE: CASE EVENT DATE: 201503
